FAERS Safety Report 16286816 (Version 2)
Quarter: 2019Q2

REPORT INFORMATION
  Report Type: Spontaneous
  Country: ID (occurrence: ID)
  Receive Date: 20190508
  Receipt Date: 20190515
  Transmission Date: 20190711
  Serious: Yes (Disabling, Other)
  Sender: FDA-Public Use
  Company Number: ID-ASTRAZENECA-2019SE68577

PATIENT
  Sex: Female

DRUGS (1)
  1. IRESSA [Suspect]
     Active Substance: GEFITINIB
     Indication: NON-SMALL CELL LUNG CANCER
     Route: 048

REACTIONS (5)
  - Malignant neoplasm progression [Unknown]
  - Deafness [Unknown]
  - Schizophrenia [Unknown]
  - Cataract [Unknown]
  - Blindness [Unknown]

NARRATIVE: CASE EVENT DATE: 201812
